FAERS Safety Report 17283695 (Version 1)
Quarter: 2020Q1

REPORT INFORMATION
  Report Type: Spontaneous
  Country: DE (occurrence: DE)
  Receive Date: 20200117
  Receipt Date: 20200117
  Transmission Date: 20200409
  Serious: Yes (Other)
  Sender: FDA-Public Use
  Company Number: DE-PFIZER INC-2020018289

PATIENT
  Age: 61 Year
  Sex: Female

DRUGS (4)
  1. XGEVA [Suspect]
     Active Substance: DENOSUMAB
     Dosage: UNK
  2. FASLODEX [Suspect]
     Active Substance: FULVESTRANT
     Dosage: UNK
  3. AMLODIPINE BESILATE [Suspect]
     Active Substance: AMLODIPINE BESYLATE
     Dosage: UNK
  4. IBRANCE [Suspect]
     Active Substance: PALBOCICLIB
     Dosage: 75 MG, UNK

REACTIONS (3)
  - Blood count abnormal [Unknown]
  - Rhabdomyolysis [Unknown]
  - Myalgia [Unknown]
